FAERS Safety Report 4685362-2 (Version None)
Quarter: 2005Q2

REPORT INFORMATION
  Report Type: 
  Country: None (occurrence: None)
  Receive Date: 20050608
  Receipt Date: 20050602
  Transmission Date: 20051028
  Serious: Yes (Hospitalization)
  Sender: FDA-Public Use
  Company Number: US-GLAXOSMITHKLINE-A0557154B

PATIENT
  Age: 69 Year
  Sex: Female
  Weight: 59.7 kg

DRUGS (8)
  1. TOPOTECAN [Suspect]
     Indication: ENDOMETRIAL CANCER STAGE IV
     Dosage: 3.5MGM2 CYCLIC
     Route: 042
     Dates: start: 20050517
  2. TAXOTERE [Suspect]
     Indication: ENDOMETRIAL CANCER STAGE IV
     Dosage: 30MG CYCLIC
     Route: 042
     Dates: start: 20050517
  3. FENTANYL [Concomitant]
     Dosage: 50MCG ALTERNATE DAYS
  4. VICODIN [Concomitant]
     Dosage: 1TAB AS REQUIRED
     Route: 048
  5. REGLAN [Concomitant]
     Dosage: 10MG AS REQUIRED
  6. ARANESP [Concomitant]
     Dosage: 200MCG EVERY TWO WEEKS
     Route: 058
  7. COMPAZINE [Concomitant]
     Dosage: 25MG AS REQUIRED
     Route: 054
  8. MORPHINE [Concomitant]

REACTIONS (7)
  - ANAEMIA [None]
  - ASTHENIA [None]
  - DEHYDRATION [None]
  - DISEASE PROGRESSION [None]
  - NAUSEA [None]
  - RECTAL HAEMORRHAGE [None]
  - VOMITING [None]
